FAERS Safety Report 23250060 (Version 1)
Quarter: 2023Q4

REPORT INFORMATION
  Report Type: Other
  Country: GB (occurrence: GB)
  Receive Date: 20231201
  Receipt Date: 20231201
  Transmission Date: 20240109
  Serious: Yes (Other)
  Sender: FDA-Public Use
  Company Number: None

PATIENT
  Age: 33 Year
  Sex: Male
  Weight: 85 kg

DRUGS (7)
  1. PREDNISOLONE [Suspect]
     Active Substance: PREDNISOLONE
     Indication: Product used for unknown indication
     Dosage: SOLUBLE TABLETS
     Route: 065
     Dates: start: 20231112
  2. ASPIRIN [Concomitant]
     Active Substance: ASPIRIN
     Indication: Product used for unknown indication
     Dosage: 1 DOSAGE FORM, QD
     Route: 065
     Dates: start: 20230530
  3. MESALAMINE [Concomitant]
     Active Substance: MESALAMINE
     Indication: Product used for unknown indication
     Dosage: 1 DOSAGE FORM, INSERT ONE METERED APPLICATION INTO THE RECTUM ...
     Route: 054
     Dates: start: 20230530
  4. OMEPRAZOLE [Concomitant]
     Active Substance: OMEPRAZOLE
     Indication: Product used for unknown indication
     Dosage: 1 DOSAGE FORM, QD
     Route: 065
     Dates: start: 20230530
  5. Salofalk [Concomitant]
     Indication: Product used for unknown indication
     Dosage: 1 DOSAGE FORM,QD ONE SACHET AS PER IBD SPEC...
     Route: 065
     Dates: start: 20230530
  6. VEDOLIZUMAB [Concomitant]
     Active Substance: VEDOLIZUMAB
     Indication: Product used for unknown indication
     Dosage: DO NOT ISSUE HOSPITAL PRESCRIPTION ONLY
     Route: 065
     Dates: start: 20210909
  7. WARFARIN SODIUM [Concomitant]
     Active Substance: WARFARIN SODIUM
     Indication: Product used for unknown indication
     Dosage: TAKE AS PRESCRIBED IN ANTICOAGULANT TREATMENT BOOK
     Route: 065
     Dates: start: 20230530

REACTIONS (2)
  - Suicidal behaviour [Recovered/Resolved]
  - Suicidal ideation [Unknown]
